FAERS Safety Report 14105996 (Version 1)
Quarter: 2017Q4

REPORT INFORMATION
  Report Type: Spontaneous
  Country: US (occurrence: US)
  Receive Date: 20171018
  Receipt Date: 20171018
  Transmission Date: 20180321
  Serious: No
  Sender: FDA-Public Use
  Company Number: US-AMGEN-USASP2016141685

PATIENT
  Age: 76 Year
  Sex: Female
  Weight: 68.48 kg

DRUGS (5)
  1. CALCIUM [Concomitant]
     Active Substance: CALCIUM
     Dosage: 2 DF, BID (1,500 MG)
     Route: 048
  2. SIMVASTATIN. [Concomitant]
     Active Substance: SIMVASTATIN
     Dosage: 20 MG, QD
     Route: 048
     Dates: start: 20140922
  3. VITAMIN D3 [Concomitant]
     Active Substance: CHOLECALCIFEROL
     Dosage: 1000 UNIT, QD
     Route: 048
     Dates: start: 20140429
  4. PROLIA [Suspect]
     Active Substance: DENOSUMAB
     Indication: OSTEOPOROSIS
     Dosage: 60 MG, Q6MO
     Route: 058
     Dates: start: 20150416
  5. LIPITOR [Concomitant]
     Active Substance: ATORVASTATIN CALCIUM
     Dosage: 20 MG, QD
     Route: 048
     Dates: start: 20151102

REACTIONS (10)
  - Hypercholesterolaemia [Not Recovered/Not Resolved]
  - Kyphoscoliosis [Unknown]
  - Lordosis [Unknown]
  - Drug dose omission [Unknown]
  - Inadequate diet [Unknown]
  - Back pain [Unknown]
  - Central obesity [Unknown]
  - Arthralgia [Unknown]
  - Dyslipidaemia [Not Recovered/Not Resolved]
  - Exercise lack of [Unknown]

NARRATIVE: CASE EVENT DATE: 20151106
